FAERS Safety Report 7361211-9 (Version None)
Quarter: 2011Q1

REPORT INFORMATION
  Report Type: 
  Country: None (occurrence: None)
  Receive Date: 20110318
  Receipt Date: 20110304
  Transmission Date: 20110831
  Serious: Yes (Other)
  Sender: FDA-Public Use
  Company Number: PHHY2011JP18710

PATIENT
  Age: 78 Year
  Sex: Male

DRUGS (2)
  1. VOLTAREN [Suspect]
     Route: 048
  2. MUCOSTA [Suspect]
     Route: 048

REACTIONS (1)
  - URINARY RETENTION [None]
